FAERS Safety Report 20757684 (Version 10)
Quarter: 2022Q4

REPORT INFORMATION
  Report Type: Report from Study
  Country: US (occurrence: US)
  Receive Date: 20220427
  Receipt Date: 20221121
  Transmission Date: 20230113
  Serious: Yes (Hospitalization, Disabling, Other)
  Sender: FDA-Public Use
  Company Number: US-JNJFOC-20220446460

PATIENT
  Age: 56 Year
  Sex: Female
  Weight: 190 kg

DRUGS (8)
  1. SPRAVATO [Suspect]
     Active Substance: ESKETAMINE
     Indication: Depression
     Dosage: 56 MG, 2 TOTAL DOSES?CONFLICTINGLY REPORTED START DATE AS 15-MAR-2022
     Dates: start: 20220321, end: 20220324
  2. SPRAVATO [Suspect]
     Active Substance: ESKETAMINE
     Indication: Major depression
     Dosage: 84 MG, 1 TOTAL DOSE
     Dates: start: 20220329, end: 20220329
  3. SPRAVATO [Suspect]
     Active Substance: ESKETAMINE
     Indication: Bipolar II disorder
     Dosage: 56 MG, 1 TOTAL DOSE
     Dates: start: 20220405, end: 20220405
  4. ADDERALL [Suspect]
     Active Substance: AMPHETAMINE ASPARTATE\AMPHETAMINE SULFATE\DEXTROAMPHETAMINE SACCHARATE\DEXTROAMPHETAMINE SULFATE
     Indication: Attention deficit hyperactivity disorder
     Dosage: 5 YEARS
     Route: 065
  5. LAMICTAL [Suspect]
     Active Substance: LAMOTRIGINE
     Indication: Drug therapy
     Route: 065
  6. CYMBALTA [Concomitant]
     Active Substance: DULOXETINE HYDROCHLORIDE
     Route: 065
  7. TRAZODONE [Concomitant]
     Active Substance: TRAZODONE HYDROCHLORIDE
  8. FOCALIN [Concomitant]
     Active Substance: DEXMETHYLPHENIDATE HYDROCHLORIDE

REACTIONS (17)
  - Serotonin syndrome [Unknown]
  - Paralysis [Unknown]
  - Bipolar disorder [Unknown]
  - Suicide attempt [Unknown]
  - Suicidal ideation [Recovered/Resolved]
  - Hallucination [Unknown]
  - Blood pressure increased [Unknown]
  - Hyperhidrosis [Unknown]
  - Depression [Recovered/Resolved]
  - Dyspnoea [Unknown]
  - Bedridden [Unknown]
  - Palpitations [Recovering/Resolving]
  - Dissociation [Unknown]
  - Product dose omission issue [Unknown]
  - Drug monitoring procedure incorrectly performed [Unknown]
  - Off label use [Unknown]
  - Extra dose administered [Unknown]

NARRATIVE: CASE EVENT DATE: 20220101
